FAERS Safety Report 6519102-9 (Version None)
Quarter: 2009Q4

REPORT INFORMATION
  Report Type: 
  Country: None (occurrence: None)
  Receive Date: 20091228
  Receipt Date: 20091210
  Transmission Date: 20100525
  Serious: Yes (Other)
  Sender: FDA-Public Use
  Company Number: CH-BAYER-200943170GPV

PATIENT
  Age: 25 Year
  Sex: Female

DRUGS (8)
  1. MELODEN [Suspect]
     Indication: ORAL CONTRACEPTION
  2. CIPROXIN [Suspect]
     Indication: DRUG USE FOR UNKNOWN INDICATION
     Dosage: TOTAL DAILY DOSE: 1000 MG
     Dates: start: 20090414, end: 20090420
  3. OMEPRAZOLE [Suspect]
     Indication: DRUG USE FOR UNKNOWN INDICATION
  4. BUSCOPAN [Suspect]
     Indication: DRUG USE FOR UNKNOWN INDICATION
     Dosage: TOTAL DAILY DOSE: 10 MG
     Dates: start: 20090101
  5. IRFEN [Suspect]
     Indication: DRUG USE FOR UNKNOWN INDICATION
  6. LYRICA [Suspect]
     Indication: DEPRESSION
  7. MYDOCALM [Suspect]
     Indication: DRUG USE FOR UNKNOWN INDICATION
     Dosage: TOTAL DAILY DOSE: 100 MG
  8. CITALOPRAM HYDROBROMIDE [Suspect]
     Indication: DEPRESSION
     Dosage: TOTAL DAILY DOSE: 40 MG

REACTIONS (3)
  - ABORTION INDUCED [None]
  - DRUG EXPOSURE DURING PREGNANCY [None]
  - PREGNANCY [None]
